FAERS Safety Report 5143134-9 (Version None)
Quarter: 2006Q4

REPORT INFORMATION
  Report Type: 
  Country: None (occurrence: None)
  Receive Date: 20061031
  Receipt Date: 20061031
  Transmission Date: 20070319
  Serious: Yes (Disabling)
  Sender: FDA-Public Use
  Company Number: None

PATIENT
  Sex: Female
  Weight: 68.0396 kg

DRUGS (2)
  1. ISOVUE-300 [Suspect]
     Indication: BREAST CANCER
     Dosage: 100ML     IV BOLUS
     Route: 040
     Dates: start: 20051030, end: 20061030
  2. ISOVUE-300 [Suspect]
     Indication: COMPUTERISED TOMOGRAM
     Dosage: 100ML     IV BOLUS
     Route: 040
     Dates: start: 20051030, end: 20061030

REACTIONS (3)
  - FLUSHING [None]
  - PRURITUS [None]
  - URTICARIA [None]
